FAERS Safety Report 5030735-1 (Version None)
Quarter: 2006Q2

REPORT INFORMATION
  Report Type: 
  Country: None (occurrence: None)
  Receive Date: 20060615
  Receipt Date: 20060602
  Transmission Date: 20061013
  Serious: Yes (Other)
  Sender: FDA-Public Use
  Company Number: 2006070858

PATIENT
  Sex: Female

DRUGS (2)
  1. FLUCONAZOLE [Suspect]
     Indication: ORAL CANDIDIASIS
     Dosage: 150 MG (150 MG, 1 IN 1 D), ORAL
     Route: 048
  2. LAMOTRIGINE [Concomitant]

REACTIONS (7)
  - CRYING [None]
  - DEPRESSION [None]
  - EMOTIONAL DISTRESS [None]
  - FATIGUE [None]
  - MENTAL STATUS CHANGES [None]
  - MOVEMENT DISORDER [None]
  - PARANOIA [None]
